FAERS Safety Report 25367482 (Version 1)
Quarter: 2025Q2

REPORT INFORMATION
  Report Type: Report from Study
  Country: US (occurrence: US)
  Receive Date: 20250528
  Receipt Date: 20250528
  Transmission Date: 20250716
  Serious: Yes (Hospitalization)
  Sender: ABBVIE
  Company Number: US-ABBVIE-6272496

PATIENT
  Sex: Female

DRUGS (1)
  1. SKYRIZI [Suspect]
     Active Substance: RISANKIZUMAB-RZAA
     Indication: Psoriasis
     Route: 058
     Dates: start: 20231027

REACTIONS (5)
  - Hypertension [Unknown]
  - Emotional distress [Not Recovered/Not Resolved]
  - Diabetes mellitus [Unknown]
  - Stress [Not Recovered/Not Resolved]
  - Headache [Unknown]
